FAERS Safety Report 24587571 (Version 2)
Quarter: 2024Q4

REPORT INFORMATION
  Report Type: Report from Study
  Country: US (occurrence: US)
  Receive Date: 20241107
  Receipt Date: 20241109
  Transmission Date: 20250115
  Serious: Yes (Death)
  Sender: ROCHE
  Company Number: US-ROCHE-10000126631

PATIENT
  Age: 37 Year
  Sex: Male

DRUGS (2)
  1. AVASTIN [Suspect]
     Active Substance: BEVACIZUMAB
     Indication: Brain neoplasm malignant
     Dosage: INFUSE 1000MG INTRAVENOUSLY EVERY 2 WEEK(S)
     Route: 042
  2. AVASTIN [Suspect]
     Active Substance: BEVACIZUMAB
     Indication: Brain oedema
     Dosage: INFUSE 1000MG INTRAVENOUSLY EVERY 2 WEEK(S)
     Route: 042

REACTIONS (1)
  - Death [Fatal]
